FAERS Safety Report 18629591 (Version 1)
Quarter: 2020Q4

REPORT INFORMATION
  Report Type: Spontaneous
  Country: US (occurrence: US)
  Receive Date: 20201217
  Receipt Date: 20201217
  Transmission Date: 20210114
  Serious: No
  Sender: FDA-Public Use
  Company Number: US-PFIZER INC-2020498398

PATIENT
  Sex: Female

DRUGS (6)
  1. CECLOR [Suspect]
     Active Substance: CEFACLOR
     Dosage: UNK
  2. KEFLEX [Suspect]
     Active Substance: CEPHALEXIN
     Dosage: UNK
  3. LAMISIL [Suspect]
     Active Substance: TERBINAFINE HYDROCHLORIDE
     Dosage: UNK
  4. PIROXICAM. [Suspect]
     Active Substance: PIROXICAM
     Dosage: UNK
  5. ANSAID [Suspect]
     Active Substance: FLURBIPROFEN
     Dosage: UNK
  6. KETOPROFEN. [Suspect]
     Active Substance: KETOPROFEN
     Dosage: UNK

REACTIONS (2)
  - Drug hypersensitivity [Unknown]
  - Pruritus [Unknown]
